FAERS Safety Report 14983320 (Version 1)
Quarter: 2018Q2

REPORT INFORMATION
  Report Type: Spontaneous
  Country: US (occurrence: US)
  Receive Date: 20180607
  Receipt Date: 20180607
  Transmission Date: 20180711
  Serious: No
  Sender: FDA-Public Use
  Company Number: US-JNJFOC-20160226970

PATIENT
  Age: 76 Year
  Sex: Male
  Weight: 99.79 kg

DRUGS (3)
  1. AMOXICILLIN W/CLAVULANIC ACID [Concomitant]
     Active Substance: AMOXICILLIN\CLAVULANIC ACID
     Indication: INFECTED BITE
     Dosage: 875/125MG
     Route: 065
     Dates: start: 20160204
  2. IMODIUM MULTI-SYMPTOM RELIEF [Suspect]
     Active Substance: DIMETHICONE\LOPERAMIDE HYDROCHLORIDE
     Route: 048
  3. IMODIUM MULTI-SYMPTOM RELIEF [Suspect]
     Active Substance: DIMETHICONE\LOPERAMIDE HYDROCHLORIDE
     Indication: DIARRHOEA
     Dosage: 1 TO 2 CAPLETS (2 CAPLETS FIRST??AND THEN 1 CAPLET 2X WITH THE NEXT LOOSE STOOL)
     Route: 048
     Dates: start: 20160216

REACTIONS (1)
  - Drug ineffective [Unknown]

NARRATIVE: CASE EVENT DATE: 201602
